FAERS Safety Report 23317152 (Version 1)
Quarter: 2023Q4

REPORT INFORMATION
  Report Type: Spontaneous
  Country: US (occurrence: None)
  Receive Date: 20231219
  Receipt Date: 20231219
  Transmission Date: 20240110
  Serious: No
  Sender: FDA-Public Use
  Company Number: US-ROCHE-3430055

PATIENT
  Age: 64 Year
  Sex: Male
  Weight: 123 kg

DRUGS (1)
  1. HEMLIBRA [Suspect]
     Active Substance: EMICIZUMAB-KXWH
     Indication: Factor VIII deficiency
     Dosage: STRENGTH: 105MG/0.7ML?LAST DOSE TAKEN ON 03/OCT/2023
     Route: 058
     Dates: start: 202309

REACTIONS (1)
  - Weight increased [Recovered/Resolved]
